FAERS Safety Report 6227037-4 (Version None)
Quarter: 2009Q2

REPORT INFORMATION
  Report Type: 
  Country: None (occurrence: None)
  Receive Date: 20090612
  Receipt Date: 20090611
  Transmission Date: 20091009
  Serious: Yes (Death, Other)
  Sender: FDA-Public Use
  Company Number: CA-ASTRAZENECA-2009UW13978

PATIENT
  Age: 33 Year
  Sex: Male

DRUGS (12)
  1. SEROQUEL [Suspect]
     Indication: AGITATION
     Route: 048
  2. SEROQUEL [Suspect]
     Route: 048
  3. CLONAZEPAM [Concomitant]
  4. CLOZAPINE [Concomitant]
  5. DOCUSATE SODIUM [Concomitant]
  6. FLUTICASONE [Concomitant]
  7. LAMOTRIGINE [Concomitant]
  8. PROPRANOLOL HYDROCHLORIDE [Concomitant]
  9. HYDROCORTISONE [Concomitant]
  10. LACTULOSE [Concomitant]
  11. LORAZEPAM [Concomitant]
  12. DILANTIN [Concomitant]
     Dates: start: 20090129

REACTIONS (3)
  - CONVULSION [None]
  - SELF INJURIOUS BEHAVIOUR [None]
  - SUDDEN DEATH [None]
